FAERS Safety Report 6807154-8 (Version None)
Quarter: 2010Q2

REPORT INFORMATION
  Report Type: 
  Country: None (occurrence: None)
  Receive Date: 20100629
  Receipt Date: 20080718
  Transmission Date: 20101027
  Serious: No
  Sender: FDA-Public Use
  Company Number: US-PFIZER INC-2008060432

PATIENT
  Sex: Female
  Weight: 104.33 kg

DRUGS (4)
  1. ARTHROTEC [Suspect]
     Indication: ARTHRITIS
     Dosage: 75MG/200MCG   TDD:75MG/200MCG
     Dates: start: 20080717
  2. ZOCOR [Concomitant]
     Indication: BLOOD CHOLESTEROL INCREASED
  3. NEXIUM [Concomitant]
  4. LEXAPRO [Concomitant]
     Indication: DEPRESSION

REACTIONS (1)
  - DIARRHOEA [None]
